FAERS Safety Report 20120067 (Version 1)
Quarter: 2021Q4

REPORT INFORMATION
  Report Type: Spontaneous
  Country: CN (occurrence: None)
  Receive Date: 20211126
  Receipt Date: 20211126
  Transmission Date: 20220303
  Serious: Yes (Other)
  Sender: FDA-Public Use
  Company Number: CN-Merck Healthcare KGaA-9282815

PATIENT
  Age: 61 Year
  Sex: Female
  Weight: 69 kg

DRUGS (1)
  1. GLUCOPHAGE [Suspect]
     Active Substance: METFORMIN HYDROCHLORIDE
     Indication: Blood glucose abnormal
     Dosage: 1.0 G IN THE MORNING, 0.5 G AT NOON, AND 0.5 G IN THE AFTERNOON
     Route: 048
     Dates: start: 20211116, end: 20211120

REACTIONS (2)
  - Nausea [Recovering/Resolving]
  - Decreased appetite [Recovering/Resolving]

NARRATIVE: CASE EVENT DATE: 20211120
